FAERS Safety Report 8919746 (Version 2)
Quarter: 2013Q1

REPORT INFORMATION
  Report Type: Spontaneous
  Country: US (occurrence: US)
  Receive Date: 20121121
  Receipt Date: 20130128
  Transmission Date: 20140127
  Serious: Yes (Hospitalization)
  Sender: FDA-Public Use
  Company Number: US-BAYER-2012-120792

PATIENT
  Age: 52 Year
  Sex: Female
  Weight: 68.03 kg

DRUGS (7)
  1. YAZ [Suspect]
     Indication: ACNE
     Dosage: UNK
     Dates: start: 20081016, end: 20090810
  2. SYNTHROID [Concomitant]
     Indication: HYPOTHYROIDISM
     Dosage: UNK
     Dates: start: 1997
  3. LEVOTHROID [Concomitant]
     Indication: HYPOTHYROIDISM
     Dosage: UNK
     Dates: start: 1997
  4. FINACEA [Concomitant]
     Indication: ACNE
     Dosage: UNK
     Dates: start: 2009
  5. ACTONEL [Concomitant]
     Indication: OSTEOPOROSIS
     Dosage: UNK
     Dates: start: 2006
  6. CALCIUM [Concomitant]
     Dosage: 1000 MG, QD
  7. ALENDRONATE SODIUM [Concomitant]

REACTIONS (6)
  - Cholecystitis acute [None]
  - Injury [None]
  - Pain [None]
  - Pain [None]
  - Cholecystitis acute [None]
  - Off label use [None]
